FAERS Safety Report 6336792-4 (Version None)
Quarter: 2009Q3

REPORT INFORMATION
  Report Type: 
  Country: None (occurrence: None)
  Receive Date: 20090831
  Receipt Date: 20090831
  Transmission Date: 20100115
  Serious: Yes (Other)
  Sender: FDA-Public Use
  Company Number: None

PATIENT
  Age: 47 Year
  Sex: Male
  Weight: 87.0906 kg

DRUGS (1)
  1. HYDROCODONE BITARTRATE + ACETAMINOPHEN [Suspect]
     Indication: PAIN MANAGEMENT
     Dosage: 1 AS NEEDED X 6HRS
     Dates: start: 20090824, end: 20090824

REACTIONS (1)
  - DRUG HYPERSENSITIVITY [None]
